FAERS Safety Report 6184080-1 (Version None)
Quarter: 2009Q2

REPORT INFORMATION
  Report Type: 
  Country: None (occurrence: None)
  Receive Date: 20090504
  Receipt Date: 20090417
  Transmission Date: 20091009
  Serious: Yes (Hospitalization)
  Sender: FDA-Public Use
  Company Number: GAM-055-09-US

PATIENT
  Age: 60 Year
  Sex: Male

DRUGS (3)
  1. IMMUNE GLOBULIN INTRAVENOUS (HUMAN) [Suspect]
     Dosage: 45 GM IV
     Dates: start: 20090417, end: 20090417
  2. DIPHENHYDRAMINE ORAL [Concomitant]
  3. ACETAMINOPHEN ORAL [Concomitant]

REACTIONS (3)
  - BLISTER [None]
  - INFUSION SITE EXTRAVASATION [None]
  - SWELLING [None]
